FAERS Safety Report 9408998 (Version 1)
Quarter: 2013Q3

REPORT INFORMATION
  Report Type: Spontaneous
  Country: US (occurrence: US)
  Receive Date: 20130719
  Receipt Date: 20130719
  Transmission Date: 20140515
  Serious: No
  Sender: FDA-Public Use
  Company Number: US-BAYER-2013-083299

PATIENT
  Age: 65 Year
  Sex: Female
  Weight: 59 kg

DRUGS (15)
  1. BETASERON [Suspect]
     Dosage: 0.3 MG, UNK
     Dates: end: 201306
  2. PROVIGIL [Concomitant]
     Dosage: 100 MG, UNK
  3. BUPROPION [Concomitant]
     Dosage: 100 MG, UNK
  4. DIOVAN HCT [Concomitant]
     Dosage: 160/25 MG
  5. BUDESONIDE [Concomitant]
     Dosage: 0.25 MG, UNK
  6. CHLORDIAZEPOX [Concomitant]
     Dosage: 25 MG, UNK
  7. CRESTOR [Concomitant]
     Dosage: 20 MG, UNK
  8. ZOLPIDEM [Concomitant]
     Dosage: 10 MG, UNK
  9. VITAMIN E [TOCOPHEROL] [Concomitant]
     Dosage: 200 U, UNK
  10. B-COMPLEX [VITAMIN B NOS] [Concomitant]
  11. BIOTIN [Concomitant]
     Dosage: 5000
  12. FISH OIL [Concomitant]
  13. CALCIUM [Concomitant]
     Dosage: 500
  14. TURMERIC [Concomitant]
     Dosage: 450 MG, UNK
  15. ALEVE TABLET [Concomitant]
     Dosage: 220 MG, UNK

REACTIONS (1)
  - Drug ineffective [Unknown]
